FAERS Safety Report 24415076 (Version 1)
Quarter: 2024Q4

REPORT INFORMATION
  Report Type: Report from Study
  Country: IN (occurrence: IN)
  Receive Date: 20241009
  Receipt Date: 20241009
  Transmission Date: 20250115
  Serious: Yes (Hospitalization)
  Sender: CIPLA
  Company Number: IN-CIPLA LTD.-2024IN11083

PATIENT

DRUGS (4)
  1. TORSEMIDE [Suspect]
     Active Substance: TORSEMIDE
     Indication: Product used for unknown indication
     Dosage: DOSE- 1 (UNSPECIFIED UNITS), FREQUENCY- 1 (UNSPECIFIED UNITS), STRENGTH-20 (UNSPECIFIED UNITS)
     Route: 048
  2. METOPROLOL SUCCINATE [Suspect]
     Active Substance: METOPROLOL SUCCINATE
     Indication: Product used for unknown indication
     Dosage: DOSE- 1 (UNSPECIFIED UNITS), FREQUENCY- 1 (UNSPECIFIED UNITS)
     Route: 048
  3. ASPIRIN\ATORVASTATIN [Concomitant]
     Active Substance: ASPIRIN\ATORVASTATIN
     Indication: Product used for unknown indication
     Dosage: UNK (75 UNSPECIFIED UNITS)
     Route: 065
  4. UDAPA [Concomitant]
     Indication: Product used for unknown indication
     Dosage: UNK (10 UNSPECIFIED UNITS)
     Route: 065

REACTIONS (1)
  - Adverse event [Not Recovered/Not Resolved]

NARRATIVE: CASE EVENT DATE: 20240101
